FAERS Safety Report 17583349 (Version 6)
Quarter: 2020Q2

REPORT INFORMATION
  Report Type: Spontaneous
  Country: DE (occurrence: DE)
  Receive Date: 20200326
  Receipt Date: 20200606
  Transmission Date: 20200713
  Serious: Yes (Life-Threatening, Hospitalization, Other)
  Sender: FDA-Public Use
  Company Number: DE-AUROBINDO-AUR-APL-2020-015224

PATIENT
  Age: 31 Year
  Sex: Male

DRUGS (4)
  1. IBUPROFEN 400 MG FILM-COATED TABLET [Interacting]
     Active Substance: IBUPROFEN
     Dosage: 1 DOSAGE FORM
     Route: 048
     Dates: start: 201903
  2. IMUPRET [Concomitant]
     Indication: PRODUCT USED FOR UNKNOWN INDICATION
     Dosage: 2 DOSAGE FORM
     Route: 065
  3. IBUPROFEN 400 MG FILM-COATED TABLET [Suspect]
     Active Substance: IBUPROFEN
     Indication: ANALGESIC INTERVENTION SUPPORTIVE THERAPY
     Dosage: 400 MILLIGRAM
     Route: 048
     Dates: start: 201903
  4. SINUPRET [Concomitant]
     Active Substance: DIETARY SUPPLEMENT\HERBALS
     Indication: PHYTOTHERAPY
     Dosage: 2 DOSAGE FORM
     Route: 048

REACTIONS (1)
  - Anaphylactic shock [Recovered/Resolved]

NARRATIVE: CASE EVENT DATE: 201903
